FAERS Safety Report 8971677 (Version 3)
Quarter: 2013Q2

REPORT INFORMATION
  Report Type: Spontaneous
  Country: JP (occurrence: JP)
  Receive Date: 20121217
  Receipt Date: 20130612
  Transmission Date: 20140414
  Serious: Yes (Hospitalization)
  Sender: FDA-Public Use
  Company Number: JP-ELI_LILLY_AND_COMPANY-JP201212001008

PATIENT
  Age: 78 Year
  Sex: Female

DRUGS (3)
  1. FORTEO [Suspect]
     Dosage: UNK
     Route: 058
     Dates: start: 20121031, end: 20121127
  2. FORTEO [Suspect]
     Dosage: UNK
     Route: 058
     Dates: start: 20121221
  3. BAYASPIRIN [Concomitant]
     Route: 048

REACTIONS (2)
  - Gastric ulcer haemorrhage [Unknown]
  - Injection site bruising [Not Recovered/Not Resolved]
